FAERS Safety Report 8043356-3 (Version None)
Quarter: 2012Q1

REPORT INFORMATION
  Report Type: 
  Country: None (occurrence: None)
  Receive Date: 20120112
  Receipt Date: 20120105
  Transmission Date: 20120608
  Serious: Yes (Hospitalization)
  Sender: FDA-Public Use
  Company Number: US-US-EMD SERONO, INC.-7103454

PATIENT
  Sex: Female
  Weight: 109 kg

DRUGS (2)
  1. REBIF [Suspect]
     Indication: MULTIPLE SCLEROSIS
     Route: 058
     Dates: start: 20101101
  2. REBIF [Suspect]
     Route: 058

REACTIONS (2)
  - ACUTE MYOCARDIAL INFARCTION [None]
  - HEADACHE [None]
